FAERS Safety Report 18216869 (Version 1)
Quarter: 2020Q3

REPORT INFORMATION
  Report Type: Spontaneous
  Country: CA (occurrence: CA)
  Receive Date: 20200901
  Receipt Date: 20200901
  Transmission Date: 20201103
  Serious: Yes (Hospitalization)
  Sender: FDA-Public Use
  Company Number: CA-ACCORD-198286

PATIENT
  Age: 73 Year
  Sex: Female

DRUGS (2)
  1. CISPLATIN. [Suspect]
     Active Substance: CISPLATIN
     Indication: OESOPHAGEAL CARCINOMA
     Dosage: SOLUTION INTRAVENOUS
  2. FLUOROURACIL. [Suspect]
     Active Substance: FLUOROURACIL
     Indication: OESOPHAGEAL CARCINOMA
     Dosage: INJECTION USP,SOLUTION INTRAVENOUS
     Route: 042

REACTIONS (5)
  - Diarrhoea [Unknown]
  - Neutrophil count decreased [Unknown]
  - Hypophagia [Unknown]
  - Pyrexia [Unknown]
  - Off label use [Unknown]
